FAERS Safety Report 25401875 (Version 1)
Quarter: 2025Q2

REPORT INFORMATION
  Report Type: Spontaneous
  Country: JP (occurrence: JP)
  Receive Date: 20250605
  Receipt Date: 20250605
  Transmission Date: 20250717
  Serious: Yes (Other)
  Sender: ABBVIE
  Company Number: JP-ABBVIE-6310654

PATIENT

DRUGS (2)
  1. ASENAPINE MALEATE [Suspect]
     Active Substance: ASENAPINE MALEATE
     Indication: Product used for unknown indication
     Route: 060
  2. BLONANSERIN [Suspect]
     Active Substance: BLONANSERIN
     Indication: Product used for unknown indication
     Route: 061

REACTIONS (1)
  - Impulsive behaviour [Unknown]
